FAERS Safety Report 10408658 (Version 1)
Quarter: 2014Q1

REPORT INFORMATION
  Report Type: Spontaneous
  Country: US (occurrence: None)
  Receive Date: 20130225
  Receipt Date: 20130225
  Transmission Date: 20141002
  Serious: No
  Sender: FDA-Public Use
  Company Number: 363844N

PATIENT
  Age: 59 Year
  Sex: Female

DRUGS (4)
  1. VICTOZA (LIRAGLUTIDE) SOLUTION FOR INJECTION, 6MG/ML [Suspect]
     Indication: TYPE 2 DIABETES MELLITUS
     Dosage: UNK, SUBCUTANEOUS
     Route: 058
     Dates: start: 20120911
  2. CRESTOR (ROSUVASTATIN CALCIUM) [Concomitant]
  3. DIOVAN (VALSARTAN) [Concomitant]
  4. METFORMIN [Concomitant]

REACTIONS (2)
  - Rash [None]
  - Injection site rash [None]
